FAERS Safety Report 11744989 (Version 2)
Quarter: 2015Q4

REPORT INFORMATION
  Report Type: Spontaneous
  Country: IN (occurrence: IN)
  Receive Date: 20151117
  Receipt Date: 20151130
  Transmission Date: 20160304
  Serious: Yes (Other)
  Sender: FDA-Public Use
  Company Number: IN-ROCHE-1661537

PATIENT
  Age: 51 Year
  Sex: Male

DRUGS (3)
  1. HEPARIN [Concomitant]
     Active Substance: HEPARIN SODIUM
  2. ALTEPLASE [Suspect]
     Active Substance: ALTEPLASE
     Indication: THROMBOLYSIS
     Dosage: (6 MG BOLUS + 1 MG/H) THROUGH THE MICRO-CATHETER
     Route: 050
  3. ORAMORPH [Suspect]
     Active Substance: MORPHINE SULFATE
     Indication: ANALGESIC THERAPY
     Route: 042

REACTIONS (2)
  - Epidural haemorrhage [Unknown]
  - Motor dysfunction [Recovered/Resolved]
